FAERS Safety Report 12975479 (Version 1)
Quarter: 2016Q4

REPORT INFORMATION
  Report Type: Other
  Country: NL (occurrence: NL)
  Receive Date: 20161125
  Receipt Date: 20161125
  Transmission Date: 20170207
  Serious: Yes (Other)
  Sender: FDA-Public Use
  Company Number: NL-WARNER CHILCOTT, LLC-1060056

PATIENT
  Age: 64 Year
  Sex: Female

DRUGS (14)
  1. HYDROCHLORTHIAZID [Concomitant]
     Active Substance: HYDROCHLOROTHIAZIDE
     Dates: start: 20050224
  2. DESLORATADINE. [Concomitant]
     Active Substance: DESLORATADINE
     Dates: start: 20070829, end: 20160923
  3. KENACORT [Concomitant]
     Active Substance: TRIAMCINOLONE
     Dates: start: 20050105, end: 20160725
  4. LOSARTAN. [Concomitant]
     Active Substance: LOSARTAN
     Dates: start: 20061107
  5. TAMOXIFEN [Concomitant]
     Active Substance: TAMOXIFEN
     Dates: start: 20141210
  6. OPATANOL [Concomitant]
     Active Substance: OLOPATADINE
     Dates: start: 20160426, end: 20160814
  7. TEMAZEPAM. [Concomitant]
     Active Substance: TEMAZEPAM
     Dates: start: 20120904, end: 20160819
  8. LIDOCAINE. [Concomitant]
     Active Substance: LIDOCAINE
     Dates: start: 20160426, end: 20160725
  9. SEREVENT DISKUS [Concomitant]
     Active Substance: SALMETEROL XINAFOATE
     Dates: start: 19990209
  10. BECLOMETASON [Concomitant]
     Active Substance: BECLOMETHASONE DIPROPIONATE
     Dates: start: 19970521
  11. LOMUDAL FORTE [Concomitant]
     Dates: start: 20010717
  12. VENTOLIN [Concomitant]
     Active Substance: ALBUTEROL SULFATE
     Dates: start: 20030120
  13. ACTONEL [Suspect]
     Active Substance: RISEDRONATE SODIUM
     Indication: OSTEOPOROSIS
     Route: 048
     Dates: start: 20150217, end: 20160922
  14. MONTELUKAST [Concomitant]
     Active Substance: MONTELUKAST SODIUM
     Dates: start: 20160107

REACTIONS (1)
  - Lupus-like syndrome [Recovered/Resolved]

NARRATIVE: CASE EVENT DATE: 20160505
